FAERS Safety Report 4703093-7 (Version None)
Quarter: 2005Q2

REPORT INFORMATION
  Report Type: 
  Country: None (occurrence: None)
  Receive Date: 20050624
  Receipt Date: 20050511
  Transmission Date: 20051028
  Serious: No
  Sender: FDA-Public Use
  Company Number: 2005BI009923

PATIENT
  Age: 49 Year
  Sex: Male

DRUGS (1)
  1. NATALIZUMAB [Suspect]
     Indication: MULTIPLE SCLEROSIS
     Dosage: 300 MG;QM;IV
     Route: 042
     Dates: start: 20050201, end: 20050201

REACTIONS (4)
  - ASTHENIA [None]
  - DYSPNOEA [None]
  - FEELING COLD [None]
  - HOT FLUSH [None]
